FAERS Safety Report 25155569 (Version 1)
Quarter: 2025Q2

REPORT INFORMATION
  Report Type: Spontaneous
  Country: US (occurrence: None)
  Receive Date: 20250403
  Receipt Date: 20250403
  Transmission Date: 20250716
  Serious: Yes (Life-Threatening, Hospitalization)
  Sender: FDA-CTU
  Company Number: None

PATIENT
  Age: 58 Year
  Sex: Male
  Weight: 109.8 kg

DRUGS (1)
  1. ROCEPHIN [Suspect]
     Active Substance: CEFTRIAXONE SODIUM
     Indication: Cellulitis
     Dosage: FREQUENCY : DAILY;?
     Route: 040
     Dates: start: 20250328, end: 20250328

REACTIONS (2)
  - Anaphylactic reaction [None]
  - Pulmonary oedema [None]

NARRATIVE: CASE EVENT DATE: 20250328
